FAERS Safety Report 4568016-2 (Version None)
Quarter: 2005Q1

REPORT INFORMATION
  Report Type: 
  Country: None (occurrence: None)
  Receive Date: 20050202
  Receipt Date: 20040712
  Transmission Date: 20050727
  Serious: Yes (Hospitalization)
  Sender: FDA-Public Use
  Company Number: FR-NOVOPROD-238132

PATIENT
  Age: 66 Year
  Sex: Male

DRUGS (18)
  1. NOVORAPID [Suspect]
     Indication: DIABETES MELLITUS INSULIN-DEPENDENT
     Dates: start: 20040602
  2. POTASSIUM PERCHLORATE SOLUTION [Concomitant]
     Indication: ILL-DEFINED DISORDER
     Dosage: 5 UNK, UNK
     Route: 048
     Dates: start: 20040525
  3. CALCIPARINE [Concomitant]
     Indication: ILL-DEFINED DISORDER
     Dosage: 2 UNK, UNK
     Route: 058
     Dates: start: 20040527, end: 20040614
  4. AUGMENTIN '125' [Concomitant]
     Indication: ILL-DEFINED DISORDER
     Route: 048
     Dates: start: 20040525
  5. NEO-MERCAZOLE TAB [Concomitant]
     Indication: ILL-DEFINED DISORDER
     Dosage: 3 UNK, UNK
     Route: 048
     Dates: start: 20040525
  6. ADANCOR [Concomitant]
     Indication: ILL-DEFINED DISORDER
     Dosage: N/A
  7. VASTEN [Concomitant]
     Indication: ILL-DEFINED DISORDER
     Dosage: N/A
  8. BISOPROLOL FUMARATE [Concomitant]
     Indication: ILL-DEFINED DISORDER
     Dosage: N/A
  9. DIFFU K [Concomitant]
     Indication: ILL-DEFINED DISORDER
     Dosage: N/A
  10. LASILIX [Concomitant]
     Indication: ILL-DEFINED DISORDER
     Dosage: N/A
  11. KARDEGIC                                /FRA/ [Concomitant]
     Indication: ILL-DEFINED DISORDER
     Dosage: N/A
  12. RABEPRAZOLE SODIUM [Concomitant]
     Indication: ILL-DEFINED DISORDER
     Dosage: N/A
  13. AMAREL [Concomitant]
     Indication: DIABETES MELLITUS
     Dates: end: 20040527
  14. CORDARONE [Concomitant]
     Indication: ILL-DEFINED DISORDER
  15. LANTUS [Concomitant]
     Indication: ILL-DEFINED DISORDER
     Dates: start: 20040317, end: 20040317
  16. LANTUS [Concomitant]
     Dates: start: 20040615
  17. GLUCOR [Concomitant]
     Indication: ILL-DEFINED DISORDER
     Dates: start: 20040527, end: 20040602
  18. MEDIATOR [Concomitant]
     Dates: end: 20040524

REACTIONS (6)
  - ATRIAL FIBRILLATION [None]
  - BLOOD PRESSURE INCREASED [None]
  - CONGESTIVE CARDIOMYOPATHY [None]
  - DERMATITIS [None]
  - LEFT VENTRICULAR FAILURE [None]
  - PRURITUS [None]
